FAERS Safety Report 4589001-0 (Version None)
Quarter: 2005Q1

REPORT INFORMATION
  Report Type: 
  Country: None (occurrence: None)
  Receive Date: 20050125
  Receipt Date: 20040922
  Transmission Date: 20050727
  Serious: No
  Sender: FDA-Public Use
  Company Number: USA040670858

PATIENT
  Age: 87 Year
  Sex: Female
  Weight: 40 kg

DRUGS (4)
  1. FORTEO [Suspect]
     Indication: HIP FRACTURE
     Dosage: 20 UG DAY
     Dates: start: 20040614
  2. EVISTA [Suspect]
     Indication: OSTEOPOROSIS
     Dosage: 60 MG DAY
     Dates: start: 20030601
  3. ZOLOFT [Concomitant]
  4. LORAZEPAM [Concomitant]

REACTIONS (6)
  - ANXIETY [None]
  - CONTUSION [None]
  - INJECTION SITE ERYTHEMA [None]
  - INJECTION SITE HAEMORRHAGE [None]
  - NASOPHARYNGITIS [None]
  - PAIN IN EXTREMITY [None]
